FAERS Safety Report 14555563 (Version 1)
Quarter: 2018Q1

REPORT INFORMATION
  Report Type: Report from Study
  Country: None (occurrence: CA)
  Receive Date: 20180220
  Receipt Date: 20180220
  Transmission Date: 20180509
  Serious: Yes (Hospitalization, Other)
  Sender: FDA-Public Use
  Company Number: CA-ABBVIE-18S-028-2261115-00

PATIENT
  Age: 77 Year
  Sex: Male
  Weight: 65.83 kg

DRUGS (1)
  1. LUPRON DEPOT [Suspect]
     Active Substance: LEUPROLIDE ACETATE
     Indication: PROSTATE CANCER
     Route: 030
     Dates: start: 20120704

REACTIONS (4)
  - Peripheral swelling [Unknown]
  - Cardiovascular disorder [Unknown]
  - Pulmonary oedema [Unknown]
  - Pericarditis [Unknown]

NARRATIVE: CASE EVENT DATE: 201801
